FAERS Safety Report 7830127-3 (Version None)
Quarter: 2011Q4

REPORT INFORMATION
  Report Type: 
  Country: None (occurrence: None)
  Receive Date: 20111019
  Receipt Date: 20111007
  Transmission Date: 20120403
  Serious: Yes (Life-Threatening, Hospitalization, Other)
  Sender: FDA-Public Use
  Company Number: FK201102141

PATIENT
  Age: 53 Year
  Sex: Male

DRUGS (3)
  1. ENOXAPARIN SODIUM [Suspect]
     Indication: ANTICOAGULANT THERAPY
     Dosage: STARTED: POST-OPERATIVE DAY 7
  2. HEPARIN SODIUM [Suspect]
     Indication: THROMBOSIS PROPHYLAXIS
     Dosage: CELL-SAVER ; STARTED: POST-OPERATIVE DAY 2
  3. FLUINDIONE (FLUINDIONE) [Concomitant]

REACTIONS (4)
  - LIVER TRANSPLANT [None]
  - BUDD-CHIARI SYNDROME [None]
  - HEPARIN-INDUCED THROMBOCYTOPENIA [None]
  - LIVER GRAFT LOSS [None]
